FAERS Safety Report 21317470 (Version 2)
Quarter: 2022Q3

REPORT INFORMATION
  Report Type: Spontaneous
  Country: US (occurrence: US)
  Receive Date: 20220911
  Receipt Date: 20220911
  Transmission Date: 20221027
  Serious: No
  Sender: FDA-Public Use
  Company Number: US-SA-SAC20220728000643

PATIENT
  Sex: Male

DRUGS (1)
  1. AUBAGIO [Suspect]
     Active Substance: TERIFLUNOMIDE
     Indication: Multiple sclerosis
     Dosage: 14 MG, QD
     Route: 048

REACTIONS (5)
  - Exposure to SARS-CoV-2 [Unknown]
  - Chills [Unknown]
  - SARS-CoV-2 test positive [Recovering/Resolving]
  - Nausea [Unknown]
  - Pain [Unknown]
